FAERS Safety Report 16659990 (Version 3)
Quarter: 2019Q3

REPORT INFORMATION
  Report Type: Spontaneous
  Country: RO (occurrence: RO)
  Receive Date: 20190802
  Receipt Date: 20190814
  Transmission Date: 20191004
  Serious: Yes (Hospitalization)
  Sender: FDA-Public Use
  Company Number: PHHY2019RO174803

PATIENT
  Age: 4 Year
  Sex: Male

DRUGS (1)
  1. CARBAMAZEPINE. [Suspect]
     Active Substance: CARBAMAZEPINE
     Indication: ACCIDENTAL EXPOSURE TO PRODUCT
     Dosage: 200 MG, THREE OR FOUR TABLETS
     Route: 048

REACTIONS (12)
  - Toxicity to various agents [Recovered/Resolved]
  - Sinus arrest [Recovered/Resolved]
  - Mydriasis [Recovered/Resolved]
  - Ataxia [Recovered/Resolved]
  - Sinoatrial block [Recovered/Resolved]
  - Somnolence [Recovered/Resolved]
  - Agitation [Recovered/Resolved]
  - Arrhythmia [Recovered/Resolved]
  - Electrocardiogram QT prolonged [Recovered/Resolved]
  - Accidental exposure to product by child [Recovered/Resolved]
  - Anticonvulsant drug level increased [Recovered/Resolved]
  - Accidental poisoning [Recovered/Resolved]
